FAERS Safety Report 15081244 (Version 1)
Quarter: 2018Q2

REPORT INFORMATION
  Report Type: Spontaneous
  Country: US (occurrence: US)
  Receive Date: 20180628
  Receipt Date: 20180628
  Transmission Date: 20180711
  Serious: Yes (Other)
  Sender: FDA-Public Use
  Company Number: US-ACCORD-066035

PATIENT
  Age: 24 Year
  Sex: Male
  Weight: 58.97 kg

DRUGS (1)
  1. CLONAZEPAM ACCORD [Suspect]
     Active Substance: CLONAZEPAM
     Indication: ANXIETY
     Dosage: STRENGTH: 1 MG?DOSE: 1 MG QID PRN
     Route: 048
     Dates: start: 20180406

REACTIONS (6)
  - Insomnia [Unknown]
  - Seizure [Unknown]
  - Drug ineffective [Unknown]
  - Product substitution issue [Unknown]
  - Withdrawal syndrome [Unknown]
  - Product quality issue [Unknown]
